FAERS Safety Report 8379673-7 (Version None)
Quarter: 2012Q2

REPORT INFORMATION
  Report Type: 
  Country: None (occurrence: None)
  Receive Date: 20120523
  Receipt Date: 20120515
  Transmission Date: 20120825
  Serious: Yes (Hospitalization)
  Sender: FDA-Public Use
  Company Number: US-ASTELLAS-2012US004504

PATIENT
  Sex: Female

DRUGS (2)
  1. ERLOTINIB HYDROCHLORIDE [Suspect]
     Indication: TRACHEAL CANCER
     Dosage: 100 MG, UID/QD
     Route: 048
  2. ERLOTINIB HYDROCHLORIDE [Suspect]
     Dosage: 25 MG, UID/QD
     Route: 048
     Dates: start: 20120424

REACTIONS (5)
  - HAEMATOMA [None]
  - OFF LABEL USE [None]
  - PLATELET COUNT DECREASED [None]
  - HAEMATOCHEZIA [None]
  - TOXICITY TO VARIOUS AGENTS [None]
